FAERS Safety Report 8277354-1 (Version None)
Quarter: 2012Q2

REPORT INFORMATION
  Report Type: 
  Country: None (occurrence: None)
  Receive Date: 20120412
  Receipt Date: 20120410
  Transmission Date: 20120825
  Serious: No
  Sender: FDA-Public Use
  Company Number: US-BAYER-2012-035077

PATIENT
  Age: 72 Year
  Sex: Male

DRUGS (3)
  1. MULTI-VITAMINS [Concomitant]
  2. STAXYN [Suspect]
     Indication: ERECTILE DYSFUNCTION
     Dosage: 10 MG, QD
     Route: 048
     Dates: start: 20120201, end: 20120407
  3. ASCORBIC ACID [Concomitant]

REACTIONS (1)
  - ERECTILE DYSFUNCTION [None]
